FAERS Safety Report 20985361 (Version 1)
Quarter: 2022Q2

REPORT INFORMATION
  Report Type: Spontaneous
  Country: US (occurrence: US)
  Receive Date: 20220621
  Receipt Date: 20220621
  Transmission Date: 20220721
  Serious: No
  Sender: FDA-Public Use
  Company Number: US-CHIESI-2022CHF01062

PATIENT
  Sex: Male
  Weight: 90 kg

DRUGS (3)
  1. FERRIPROX [Suspect]
     Active Substance: DEFERIPRONE
     Indication: Haemochromatosis
     Dosage: 4000 MILLIGRAM, BID
     Route: 048
     Dates: start: 202111
  2. FERRIPROX [Suspect]
     Active Substance: DEFERIPRONE
     Indication: Transfusion
     Dosage: UNK
     Route: 048
     Dates: start: 20181228, end: 201910
  3. FERRIPROX [Suspect]
     Active Substance: DEFERIPRONE
     Indication: Thalassaemia beta
     Dosage: UNK
     Route: 048
     Dates: start: 201910

REACTIONS (2)
  - Hyperphagia [Unknown]
  - Weight increased [Recovering/Resolving]
